FAERS Safety Report 7385715-8 (Version None)
Quarter: 2011Q1

REPORT INFORMATION
  Report Type: 
  Country: None (occurrence: None)
  Receive Date: 20110331
  Receipt Date: 20110318
  Transmission Date: 20110831
  Serious: Yes (Other)
  Sender: FDA-Public Use
  Company Number: US-ASTRAZENECA-2007UW05180

PATIENT
  Age: 18452 Day
  Sex: Female
  Weight: 97.5 kg

DRUGS (3)
  1. SEROQUEL [Suspect]
     Indication: DEPRESSION
     Route: 048
     Dates: start: 20040608, end: 20070101
  2. ABILIFY [Concomitant]
     Dosage: 100-300 MG
     Dates: start: 20060801, end: 20070120
  3. PAXIL [Concomitant]
     Dates: start: 19990101, end: 20010101

REACTIONS (5)
  - OSTEOPOROSIS [None]
  - PANCREATITIS ACUTE [None]
  - ARTHROPATHY [None]
  - DIABETES MELLITUS [None]
  - ARTHRITIS [None]
